FAERS Safety Report 22531024 (Version 1)
Quarter: 2023Q2

REPORT INFORMATION
  Report Type: Spontaneous
  Country: US (occurrence: US)
  Receive Date: 20230607
  Receipt Date: 20230607
  Transmission Date: 20230721
  Serious: No
  Sender: FDA-Public Use
  Company Number: US-SANOFI-01638886

PATIENT
  Age: 99 Year
  Sex: Female

DRUGS (4)
  1. CHILDREN^S ALLEGRA ALLERGY [Suspect]
     Active Substance: FEXOFENADINE HYDROCHLORIDE
     Indication: Hypersensitivity
     Dosage: 1/4 TEASPOON BEFORE BED 11PM
  2. AZELASTINE [Concomitant]
     Active Substance: AZELASTINE
  3. NASACORT [Concomitant]
     Active Substance: TRIAMCINOLONE ACETONIDE
     Indication: Sneezing
  4. NASACORT [Concomitant]
     Active Substance: TRIAMCINOLONE ACETONIDE
     Indication: Rhinorrhoea

REACTIONS (8)
  - Pruritus [Unknown]
  - Pain [Unknown]
  - Skin burning sensation [Unknown]
  - Vision blurred [Unknown]
  - Hypoaesthesia [Unknown]
  - Sleep disorder [Unknown]
  - Rhinorrhoea [Unknown]
  - Sneezing [Unknown]
